FAERS Safety Report 8386615-7 (Version None)
Quarter: 2012Q2

REPORT INFORMATION
  Report Type: 
  Country: None (occurrence: None)
  Receive Date: 20120525
  Receipt Date: 20120316
  Transmission Date: 20120825
  Serious: No
  Sender: FDA-Public Use
  Company Number: US-GLAXOSMITHKLINE-A0970191A

PATIENT
  Age: 64 Year
  Sex: Male

DRUGS (6)
  1. LISINOPRIL [Concomitant]
  2. ASPIRIN [Concomitant]
  3. MULTI-VITAMIN [Concomitant]
  4. STATINS [Concomitant]
  5. VERAMYST [Suspect]
     Indication: CHRONIC SINUSITIS
     Dosage: 2PUFF PER DAY
     Route: 045
     Dates: start: 20120201
  6. LOVAZA [Concomitant]

REACTIONS (3)
  - DARK CIRCLES UNDER EYES [None]
  - EYE PAIN [None]
  - ASTHENOPIA [None]
